FAERS Safety Report 7469697-6 (Version None)
Quarter: 2011Q2

REPORT INFORMATION
  Report Type: 
  Country: None (occurrence: None)
  Receive Date: 20110510
  Receipt Date: 20110502
  Transmission Date: 20111010
  Serious: Yes (Other)
  Sender: FDA-Public Use
  Company Number: FR-TYCO HEALTHCARE/MALLINCKRODT-T201100887

PATIENT
  Weight: 70 kg

DRUGS (3)
  1. NAVELBINE [Concomitant]
     Indication: CHEMOTHERAPY
     Dosage: UNK
  2. CISPLATINE CYTOSAFE [Concomitant]
     Indication: CHEMOTHERAPY
     Dosage: UNK
  3. OPTIJECT [Suspect]
     Indication: COMPUTERISED TOMOGRAM
     Dosage: 120 ML, SINGLE
     Route: 065
     Dates: start: 20110502, end: 20110502

REACTIONS (3)
  - SENSE OF OPPRESSION [None]
  - INJECTION SITE EXTRAVASATION [None]
  - INJECTION SITE OEDEMA [None]
